FAERS Safety Report 5288624-3 (Version None)
Quarter: 2007Q2

REPORT INFORMATION
  Report Type: 
  Country: None (occurrence: None)
  Receive Date: 20070405
  Receipt Date: 20070330
  Transmission Date: 20071010
  Serious: Yes (Death, Life-Threatening)
  Sender: FDA-Public Use
  Company Number: HQWYE380105DEC06

PATIENT
  Sex: Male
  Weight: 62 kg

DRUGS (7)
  1. GEMTUZUMAB OZOGAMICIN [Suspect]
     Indication: ACUTE MYELOID LEUKAEMIA
     Route: 042
     Dates: start: 20061118, end: 20061118
  2. GEMTUZUMAB OZOGAMICIN [Suspect]
     Dosage: 5 MG
     Route: 042
     Dates: start: 20061125, end: 20061125
  3. MEROPENEM [Concomitant]
     Dosage: 3 GN - DAILY FREQUENCY NOT SPECIFIED
     Route: 065
     Dates: start: 20061201, end: 20061205
  4. LEVOFLOXACIN [Concomitant]
     Dosage: 500 MG
     Dates: start: 20061116
  5. VORICONAZOLE [Concomitant]
     Dosage: 400 MG - DAILY FREQUENCY NOT SPECIFIED
     Route: 065
     Dates: start: 20061201, end: 20061205
  6. GLAZIDIM [Concomitant]
     Dosage: 6 GM
     Dates: start: 20061123
  7. TRIDECANAMINE [Concomitant]
     Dosage: 600 MG
     Dates: start: 20061123

REACTIONS (4)
  - COLITIS ISCHAEMIC [None]
  - DISEASE PROGRESSION [None]
  - INFECTION [None]
  - RESPIRATORY DISTRESS [None]
